FAERS Safety Report 8799986 (Version 2)
Quarter: 2012Q4

REPORT INFORMATION
  Report Type: 
  Country: US (occurrence: US)
  Receive Date: 20120921
  Receipt Date: 20121102
  Transmission Date: 20130627
  Serious: Yes (Death)
  Sender: FDA-Public Use
  Company Number: US-ROCHE-1103732

PATIENT
  Sex: Male

DRUGS (3)
  1. AVASTIN [Suspect]
     Indication: BONE NEOPLASM MALIGNANT
     Route: 042
     Dates: start: 20081001, end: 20081028
  2. AVASTIN [Suspect]
     Indication: BONE NEOPLASM MALIGNANT
  3. AVASTIN [Suspect]
     Indication: GASTRIC CANCER

REACTIONS (1)
  - Death [Fatal]
